FAERS Safety Report 11691350 (Version 4)
Quarter: 2015Q4

REPORT INFORMATION
  Report Type: Spontaneous
  Country: US (occurrence: US)
  Receive Date: 20151102
  Receipt Date: 20151201
  Transmission Date: 20160304
  Serious: Yes (Other)
  Sender: FDA-Public Use
  Company Number: US-PFIZER INC-2015369882

PATIENT
  Age: 10 Year
  Sex: Female
  Weight: 59 kg

DRUGS (4)
  1. QUILLIVANT XR [Suspect]
     Active Substance: METHYLPHENIDATE HYDROCHLORIDE
     Dosage: 40MG (8ML) ONCE DAILY EVERY MORNING
     Route: 048
     Dates: start: 20151005, end: 201510
  2. QUILLIVANT XR [Suspect]
     Active Substance: METHYLPHENIDATE HYDROCHLORIDE
     Dosage: 40MG (8ML) ONCE DAILY EVERY MORNING
     Route: 048
     Dates: start: 201510, end: 201510
  3. QUILLIVANT XR [Suspect]
     Active Substance: METHYLPHENIDATE HYDROCHLORIDE
     Indication: ATTENTION DEFICIT/HYPERACTIVITY DISORDER
     Dosage: 30MG (6 ML), UNK
     Route: 048
     Dates: start: 20150511, end: 201510
  4. CLINDAMYCIN [Concomitant]
     Active Substance: CLINDAMYCIN\CLINDAMYCIN PHOSPHATE
     Indication: TONSILLECTOMY
     Dosage: UNK, 1X/DAY

REACTIONS (8)
  - Product taste abnormal [Not Recovered/Not Resolved]
  - Drug effect incomplete [Recovered/Resolved]
  - Suicidal ideation [Not Recovered/Not Resolved]
  - Emotional disorder [Not Recovered/Not Resolved]
  - Product quality issue [Not Recovered/Not Resolved]
  - Sleep disorder [Not Recovered/Not Resolved]
  - Intentional product misuse [Not Recovered/Not Resolved]
  - Depression [Not Recovered/Not Resolved]

NARRATIVE: CASE EVENT DATE: 201509
